FAERS Safety Report 7074551-8 (Version None)
Quarter: 2010Q4

REPORT INFORMATION
  Report Type: 
  Country: None (occurrence: None)
  Receive Date: 20101029
  Receipt Date: 20101016
  Transmission Date: 20110411
  Serious: Yes (Death, Other)
  Sender: FDA-Public Use
  Company Number: FR-GENZYME-FLUD-1000328

PATIENT
  Age: 56 Year
  Sex: Female

DRUGS (10)
  1. FLUDARA [Suspect]
     Indication: STEM CELL TRANSPLANT
     Dosage: 40 MG/M2, QDX4
     Route: 042
  2. ANTI-THYMOCYTE GLOBULIN NOS [Suspect]
     Indication: STEM CELL TRANSPLANT
     Dosage: 2.5 MG/KG, QDX2
     Route: 065
  3. BUSULFAN [Suspect]
     Indication: STEM CELL TRANSPLANT
     Dosage: 130 MG/M2, QDX3
     Route: 065
  4. ISOPHOSPHAMIDE [Concomitant]
     Indication: SARCOMA
     Dosage: UNK UNK, UNK
  5. DOXORUBICIN HCL [Concomitant]
     Indication: SARCOMA
     Dosage: UNK UNK, UNK
  6. PLATELETS [Concomitant]
     Indication: PANCYTOPENIA
     Dosage: UNK
     Route: 042
  7. CYCLOSPORINE [Concomitant]
     Indication: PROPHYLAXIS AGAINST GRAFT VERSUS HOST DISEASE
     Dosage: 3 MG/KG, UNK
     Route: 042
  8. HEPARIN [Concomitant]
     Indication: THROMBOSIS PROPHYLAXIS
     Dosage: 200 IU/KG, QD
     Route: 042
  9. TINZAPARIN SODIUM [Concomitant]
     Indication: THROMBOSIS PROPHYLAXIS
     Dosage: 175 U/KG, UNK
     Route: 058
  10. RED BLOOD CELLS [Concomitant]
     Indication: PANCYTOPENIA
     Dosage: UNK UNK, UNK

REACTIONS (5)
  - ACUTE GRAFT VERSUS HOST DISEASE IN SKIN [None]
  - DISEASE PROGRESSION [None]
  - HAEMORRHAGE [None]
  - PNEUMONIA [None]
  - THROMBOCYTOPENIA [None]
